FAERS Safety Report 10161226 (Version 2)
Quarter: 2014Q2

REPORT INFORMATION
  Report Type: Report from Study
  Country: DE (occurrence: DE)
  Receive Date: 20140508
  Receipt Date: 20140508
  Transmission Date: 20141212
  Serious: Yes (Hospitalization)
  Sender: FDA-Public Use
  Company Number: PHHY2011DE85203

PATIENT
  Age: 30 Year
  Sex: Male

DRUGS (4)
  1. EXTAVIA [Suspect]
     Indication: MULTIPLE SCLEROSIS
     Dosage: 0.25 ML, QOD
     Route: 058
     Dates: start: 20110919
  2. EXTAVIA [Suspect]
     Dosage: 1 ML, QOD
     Route: 058
     Dates: end: 20140502
  3. IBUPROFEN [Concomitant]
     Dosage: 600 MG, ON DEMAND
     Route: 048
     Dates: start: 20110919, end: 20111201
  4. IBUPROFEN [Concomitant]
     Dosage: 600 UNK, UNK

REACTIONS (7)
  - Body temperature decreased [Recovered/Resolved]
  - Mental disorder [Recovered/Resolved]
  - Gastrointestinal infection [Recovered/Resolved]
  - Injection site inflammation [Recovered/Resolved]
  - Muscle spasms [Recovered/Resolved]
  - Chills [Recovered/Resolved]
  - Myalgia [Recovered/Resolved]
